FAERS Safety Report 17835172 (Version 1)
Quarter: 2020Q2

REPORT INFORMATION
  Report Type: Spontaneous
  Country: US (occurrence: US)
  Receive Date: 20200528
  Receipt Date: 20200528
  Transmission Date: 20200714
  Serious: Yes (Death, Life-Threatening)
  Sender: FDA-Public Use
  Company Number: US-AMNEAL PHARMACEUTICALS-2020-AMRX-01518

PATIENT
  Age: 65 Year
  Sex: Male

DRUGS (3)
  1. TAMSULOSIN HYDROCHLORIDE. [Suspect]
     Active Substance: TAMSULOSIN HYDROCHLORIDE
     Indication: SUICIDE ATTEMPT
     Dosage: 30 TABLETS, SINGLE
     Route: 048
  2. PREZISTA [Suspect]
     Active Substance: DARUNAVIR ETHANOLATE
     Indication: SUICIDE ATTEMPT
     Dosage: 30 TABLETS, SINGLE
     Route: 048
  3. GENVOYA [Suspect]
     Active Substance: COBICISTAT\ELVITEGRAVIR\EMTRICITABINE\TENOFOVIR ALAFENAMIDE FUMARATE
     Indication: SUICIDE ATTEMPT
     Dosage: 150/150/200/10 MG, 30 TABLETS, SINGLE
     Route: 048

REACTIONS (6)
  - Toxicity to various agents [Unknown]
  - Hypotension [Unknown]
  - Pulseless electrical activity [Fatal]
  - Intentional overdose [Unknown]
  - Completed suicide [Fatal]
  - Mental status changes [Unknown]
